FAERS Safety Report 19078759 (Version 1)
Quarter: 2021Q1

REPORT INFORMATION
  Report Type: Spontaneous
  Country: US (occurrence: US)
  Receive Date: 20210331
  Receipt Date: 20210331
  Transmission Date: 20210420
  Serious: No
  Sender: FDA-Public Use
  Company Number: US-TEVA-2021-US-1895110

PATIENT
  Age: 57 Year
  Sex: Female

DRUGS (1)
  1. PROAIR HFA [Suspect]
     Active Substance: ALBUTEROL SULFATE
     Dosage: DOSE: INHALE 2 PUFFS BY MOUTH EVERY 4 HOURS AS NEEDED
     Route: 055

REACTIONS (2)
  - Therapeutic product effect decreased [Unknown]
  - Extra dose administered [Unknown]
